FAERS Safety Report 9812653 (Version 1)
Quarter: 2014Q1

REPORT INFORMATION
  Report Type: Report from Study
  Country: US (occurrence: US)
  Receive Date: 20140113
  Receipt Date: 20140113
  Transmission Date: 20141002
  Serious: Yes (Death)
  Sender: FDA-Public Use
  Company Number: US-ROCHE-1332352

PATIENT
  Age: 52 Year
  Sex: Male

DRUGS (4)
  1. AVASTIN [Suspect]
     Indication: URETERIC CANCER
     Dosage: SECOND LINE THERAPY
     Route: 065
  2. AVASTIN [Suspect]
     Indication: METASTASES TO CENTRAL NERVOUS SYSTEM
  3. IRINOTECAN [Concomitant]
  4. TAXOL [Concomitant]

REACTIONS (1)
  - Death [Fatal]
